FAERS Safety Report 5852872-1 (Version None)
Quarter: 2008Q3

REPORT INFORMATION
  Report Type: 
  Country: None (occurrence: None)
  Receive Date: 20080815
  Receipt Date: 20070809
  Transmission Date: 20090109
  Serious: Yes (Other)
  Sender: FDA-Public Use
  Company Number: 07H-163-0313019-00

PATIENT
  Age: 41 Year
  Sex: Female

DRUGS (1)
  1. VANCOMYCIN HYDROCHLORIDE [Suspect]
     Dates: start: 20070101

REACTIONS (1)
  - RENAL FAILURE ACUTE [None]
